FAERS Safety Report 10616538 (Version 2)
Quarter: 2015Q1

REPORT INFORMATION
  Report Type: Report from Study
  Country: CA (occurrence: CA)
  Receive Date: 20141201
  Receipt Date: 20150107
  Transmission Date: 20150720
  Serious: Yes (Hospitalization, Other)
  Sender: FDA-Public Use
  Company Number: CA-ABBVIE-14K-028-1312207-00

PATIENT
  Sex: Female
  Weight: 63.56 kg

DRUGS (2)
  1. HUMIRA [Suspect]
     Active Substance: ADALIMUMAB
     Dosage: 160 MG THEN 80 MG LOADING DOSES
     Route: 058
     Dates: start: 20140925, end: 20140925
  2. HUMIRA [Suspect]
     Active Substance: ADALIMUMAB
     Indication: CROHN^S DISEASE
     Dosage: 160 MG THEN 80 MG LOADING DOSES
     Route: 058
     Dates: start: 20140911, end: 20140911

REACTIONS (2)
  - Drug ineffective [Not Recovered/Not Resolved]
  - Intestinal obstruction [Unknown]

NARRATIVE: CASE EVENT DATE: 2014
